FAERS Safety Report 7235358-1 (Version None)
Quarter: 2011Q1

REPORT INFORMATION
  Report Type: 
  Country: None (occurrence: None)
  Receive Date: 20110120
  Receipt Date: 20110111
  Transmission Date: 20110831
  Serious: No
  Sender: FDA-Public Use
  Company Number: US-JNJFOC-20110103638

PATIENT
  Sex: Male
  Weight: 21.77 kg

DRUGS (3)
  1. INVEGA [Suspect]
     Indication: ATTENTION DEFICIT/HYPERACTIVITY DISORDER
     Route: 048
  2. CLONIDINE [Concomitant]
     Indication: SLEEP DISORDER
     Route: 048
  3. INTUNIV [Concomitant]
     Indication: ATTENTION DEFICIT/HYPERACTIVITY DISORDER
     Route: 048

REACTIONS (3)
  - DYSPHAGIA [None]
  - ANGER [None]
  - OFF LABEL USE [None]
